FAERS Safety Report 18371008 (Version 4)
Quarter: 2021Q1

REPORT INFORMATION
  Report Type: Spontaneous
  Country: US (occurrence: US)
  Receive Date: 20201012
  Receipt Date: 20210106
  Transmission Date: 20210419
  Serious: Yes (Other)
  Sender: FDA-Public Use
  Company Number: US-KYOWAKIRIN-2020BKK016228

PATIENT

DRUGS (2)
  1. NOURIANZ [Suspect]
     Active Substance: ISTRADEFYLLINE
     Indication: PARKINSON^S DISEASE
     Dosage: 20 MG, DAILY
     Route: 048
     Dates: start: 20200821, end: 202011
  2. NOURIANZ [Suspect]
     Active Substance: ISTRADEFYLLINE
     Indication: PARKINSON^S DISEASE
     Dosage: 40 MG, QD
     Route: 048
     Dates: start: 202011, end: 2020

REACTIONS (5)
  - Hallucination [Unknown]
  - Dyskinesia [Unknown]
  - Drug ineffective [Not Recovered/Not Resolved]
  - Parkinson^s disease [Unknown]
  - Gait disturbance [Unknown]

NARRATIVE: CASE EVENT DATE: 2020
